FAERS Safety Report 9382286 (Version 1)
Quarter: 2013Q3

REPORT INFORMATION
  Report Type: Report from Study
  Country: US (occurrence: US)
  Receive Date: 20130703
  Receipt Date: 20130703
  Transmission Date: 20140515
  Serious: Yes (Hospitalization)
  Sender: FDA-Public Use
  Company Number: US-ABBOTT-13P-163-1111021-00

PATIENT
  Age: 65 Year
  Sex: Male

DRUGS (18)
  1. HUMIRA [Suspect]
     Indication: PSORIATIC ARTHROPATHY
     Route: 058
     Dates: end: 20121024
  2. HUMIRA [Suspect]
     Indication: RHEUMATOID ARTHRITIS
  3. HUMIRA [Suspect]
     Indication: PSORIASIS
     Dates: start: 201304
  4. QUINAPRIL [Suspect]
     Indication: PRODUCT USED FOR UNKNOWN INDICATION
     Dosage: DAILY, LOWEST DOSE AVAILABLE
  5. SIMPONIC [Suspect]
     Indication: PSORIATIC ARTHROPATHY
  6. SIMPONIC [Suspect]
     Indication: PSORIASIS
  7. ALLOPURINOL [Concomitant]
     Indication: GOUT
  8. ALLOPURINOL [Concomitant]
     Indication: PROPHYLAXIS
  9. ASPIRIN [Concomitant]
     Indication: PRODUCT USED FOR UNKNOWN INDICATION
  10. CO-Q10 [Concomitant]
     Indication: PRODUCT USED FOR UNKNOWN INDICATION
  11. CRESTOR [Concomitant]
     Indication: BLOOD CHOLESTEROL INCREASED
  12. GLIMEPIRIDE [Concomitant]
     Indication: DIABETES MELLITUS
  13. MULTIVITAMINS [Concomitant]
     Indication: PRODUCT USED FOR UNKNOWN INDICATION
  14. CLOPIDOGREL [Concomitant]
     Indication: CORONARY ARTERIAL STENT INSERTION
  15. TOPROL [Concomitant]
     Indication: BLOOD PRESSURE
     Dates: end: 2011
  16. TOPROL [Concomitant]
     Dates: start: 2011
  17. AMANTADINE [Concomitant]
     Indication: PARKINSON^S DISEASE
  18. AZILECT [Concomitant]
     Indication: PARKINSON^S DISEASE

REACTIONS (13)
  - Head injury [Recovering/Resolving]
  - Fall [Recovering/Resolving]
  - Cerebral haemorrhage [Recovering/Resolving]
  - Influenza like illness [Recovering/Resolving]
  - Blood glucose increased [Recovering/Resolving]
  - Blood pressure decreased [Recovering/Resolving]
  - Psoriasis [Recovering/Resolving]
  - Joint warmth [Recovering/Resolving]
  - Dry eye [Recovering/Resolving]
  - Tremor [Not Recovered/Not Resolved]
  - Balance disorder [Not Recovered/Not Resolved]
  - Parkinsonism [Not Recovered/Not Resolved]
  - Urinary tract disorder [Recovering/Resolving]
